FAERS Safety Report 14008468 (Version 1)
Quarter: 2017Q3

REPORT INFORMATION
  Report Type: Spontaneous
  Country: US (occurrence: US)
  Receive Date: 20170925
  Receipt Date: 20170925
  Transmission Date: 20171128
  Serious: Yes (Death)
  Sender: FDA-Public Use
  Company Number: None

PATIENT
  Age: 55 Year
  Sex: Male
  Weight: 70.6 kg

DRUGS (7)
  1. ONDANSETRON [Concomitant]
     Active Substance: ONDANSETRON
  2. MULTIVITAMIN [Concomitant]
     Active Substance: VITAMINS
  3. OXYCODONE [Concomitant]
     Active Substance: OXYCODONE
  4. MEGESTROL [Concomitant]
     Active Substance: MEGESTROL
  5. LORAZEPAM. [Concomitant]
     Active Substance: LORAZEPAM
  6. PROCHLORPERAZINE. [Concomitant]
     Active Substance: PROCHLORPERAZINE
  7. XARELTO [Suspect]
     Active Substance: RIVAROXABAN
     Indication: MESENTERIC ARTERY THROMBOSIS
     Route: 048
     Dates: start: 20170821, end: 20170923

REACTIONS (12)
  - Gastrointestinal haemorrhage [None]
  - Haematuria [None]
  - Faeces discoloured [None]
  - Abdominal pain upper [None]
  - Haematocrit decreased [None]
  - Lactic acidosis [None]
  - Metastases to liver [None]
  - International normalised ratio increased [None]
  - Disseminated intravascular coagulation [None]
  - Bradycardia [None]
  - Haemoglobin decreased [None]
  - Metabolic acidosis [None]

NARRATIVE: CASE EVENT DATE: 20170925
